FAERS Safety Report 8835267 (Version 2)
Quarter: 2012Q4

REPORT INFORMATION
  Report Type: 
  Country: ES (occurrence: ES)
  Receive Date: 20121011
  Receipt Date: 20121023
  Transmission Date: 20130627
  Serious: Yes (Hospitalization)
  Sender: FDA-Public Use
  Company Number: ES-TEVA-362717ISR

PATIENT
  Age: 67 Year
  Sex: Male

DRUGS (1)
  1. METHOTREXATE [Suspect]
     Indication: RHEUMATOID ARTHRITIS
     Dosage: 15mg weekly
     Route: 065

REACTIONS (2)
  - Visceral leishmaniasis [Recovering/Resolving]
  - Bone marrow failure [Recovering/Resolving]
